FAERS Safety Report 6388918-4 (Version None)
Quarter: 2009Q4

REPORT INFORMATION
  Report Type: 
  Country: None (occurrence: None)
  Receive Date: 20091001
  Receipt Date: 20090917
  Transmission Date: 20100525
  Serious: Yes (Death, Hospitalization)
  Sender: FDA-Public Use
  Company Number: CLOF-1000277

PATIENT
  Age: 75 Year
  Sex: Male

DRUGS (12)
  1. CLOFARABINE         (CLOFARABINE) SOLUTION FOR INFUSION [Suspect]
     Indication: ACUTE MYELOID LEUKAEMIA
     Dosage: 38 MG, QD, INTRAVENOUS
     Route: 042
     Dates: start: 20080514, end: 20080515
  2. CIPROFLOXACIN        (CIPROFLOXACIN LACTATE) [Concomitant]
  3. FELODIPINE [Concomitant]
  4. MEDROXYPROGESTERONE ACETATE [Concomitant]
  5. BENDROFLUMETHIAZIDE (BENDROFLUMETHIAZIDE) [Concomitant]
  6. PIPERACILLIN SODIUM AND TAZOBACTAM SODIUM [Concomitant]
  7. ONDANSETRON [Concomitant]
  8. DOMPERIDONE (DOMPERIDONE) [Concomitant]
  9. FLUCONAZOLE [Concomitant]
  10. DIGOXIN [Concomitant]
  11. FUROSEMIDE (FUROSEMIDE SODIUM) [Concomitant]
  12. RASBURICASE (RASBURICASE) [Concomitant]

REACTIONS (9)
  - ACIDOSIS [None]
  - DIABETES MELLITUS [None]
  - FAECAL INCONTINENCE [None]
  - HAEMOGLOBIN DECREASED [None]
  - HYPERVENTILATION [None]
  - RENAL FAILURE ACUTE [None]
  - SEPSIS [None]
  - TACHYCARDIA [None]
  - TUMOUR LYSIS SYNDROME [None]
